FAERS Safety Report 23924686 (Version 2)
Quarter: 2024Q2

REPORT INFORMATION
  Report Type: Spontaneous
  Country: AR (occurrence: AR)
  Receive Date: 20240531
  Receipt Date: 20240610
  Transmission Date: 20240716
  Serious: Yes (Other)
  Sender: FDA-Public Use
  Company Number: AR-ABBVIE-5779512

PATIENT
  Age: 76 Year
  Sex: Female

DRUGS (2)
  1. CYCLOSPORINE [Suspect]
     Active Substance: CYCLOSPORINE
     Indication: Ocular pemphigoid
     Route: 065
     Dates: start: 2015
  2. METHOTREXATE [Concomitant]
     Active Substance: METHOTREXATE
     Indication: Product used for unknown indication
     Route: 065
     Dates: start: 2015

REACTIONS (10)
  - Blindness unilateral [Recovered/Resolved]
  - Eye discharge [Unknown]
  - Flat anterior chamber of eye [Unknown]
  - Eye irritation [Unknown]
  - Aqueous humour leakage [Recovered/Resolved]
  - Conjunctival adhesion [Unknown]
  - Eye disorder [Unknown]
  - Ulcerative keratitis [Unknown]
  - Keratitis [Unknown]
  - Blindness unilateral [Unknown]
